FAERS Safety Report 4679247-5 (Version None)
Quarter: 2005Q2

REPORT INFORMATION
  Report Type: 
  Country: None (occurrence: None)
  Receive Date: 20050531
  Receipt Date: 20050531
  Transmission Date: 20051028
  Serious: Yes (Death)
  Sender: FDA-Public Use
  Company Number: None

PATIENT
  Age: 22 Year
  Sex: Female
  Weight: 49.2 kg

DRUGS (2)
  1. ETANERCEPT [Suspect]
     Indication: GRAFT VERSUS HOST DISEASE
     Dosage: 25 MG 2X/WEEK SQ
     Route: 058
     Dates: start: 20050304, end: 20050503
  2. SEE IMAGE [Concomitant]

REACTIONS (19)
  - ABDOMINAL PAIN [None]
  - ASCITES [None]
  - BLOOD BILIRUBIN INCREASED [None]
  - BLOOD PRESSURE DECREASED [None]
  - COLONOSCOPY ABNORMAL [None]
  - DIALYSIS [None]
  - DIARRHOEA [None]
  - GASTROINTESTINAL DISORDER [None]
  - GRAFT VERSUS HOST DISEASE [None]
  - HAEMODYNAMIC INSTABILITY [None]
  - OXYGEN SATURATION DECREASED [None]
  - RENAL FAILURE [None]
  - RESPIRATORY DISTRESS [None]
  - RESPIRATORY FAILURE [None]
  - SEPSIS [None]
  - STAPHYLOCOCCAL BACTERAEMIA [None]
  - TRANSPLANT FAILURE [None]
  - URINE OUTPUT DECREASED [None]
  - WEIGHT DECREASED [None]
